FAERS Safety Report 4901648-8 (Version None)
Quarter: 2006Q1

REPORT INFORMATION
  Report Type: 
  Country: None (occurrence: None)
  Receive Date: 20060206
  Receipt Date: 20050824
  Transmission Date: 20060701
  Serious: Yes (Life-Threatening)
  Sender: FDA-Public Use
  Company Number: US-BRISTOL-MYERS SQUIBB COMPANY-13088588

PATIENT
  Age: 83 Year
  Sex: Male
  Weight: 66 kg

DRUGS (13)
  1. TAXOL [Suspect]
     Indication: OESOPHAGEAL CARCINOMA
     Route: 042
     Dates: start: 20050824, end: 20050824
  2. ALOXI [Concomitant]
     Indication: PREMEDICATION
     Route: 042
     Dates: start: 20050824, end: 20050824
  3. DECADRON PHOSPHATE [Concomitant]
     Indication: PREMEDICATION
     Dosage: ORALLY ON 23-AUG-2004 (UNSPECIFIED DOSE); INTRAVENOUSLY ON 24-AUG-2005 - 20 MILLIGRAMS
     Dates: start: 20050823, end: 20050824
  4. TAGAMET [Concomitant]
     Indication: PREMEDICATION
     Route: 042
     Dates: start: 20050824, end: 20050824
  5. BENADRYL [Concomitant]
     Indication: PREMEDICATION
     Route: 042
     Dates: start: 20050824, end: 20050824
  6. PLAVIX [Concomitant]
  7. PREVACID [Concomitant]
  8. TOPROL [Concomitant]
  9. LEXAPRO [Concomitant]
  10. LASIX [Concomitant]
  11. ZOCOR [Concomitant]
  12. POTASSIUM [Concomitant]
  13. RADIATION THERAPY [Concomitant]

REACTIONS (4)
  - BLOOD PRESSURE DECREASED [None]
  - COMA [None]
  - DIZZINESS [None]
  - HYPERHIDROSIS [None]
